FAERS Safety Report 5136288-1 (Version None)
Quarter: 2006Q4

REPORT INFORMATION
  Report Type: 
  Country: None (occurrence: None)
  Receive Date: 20061027
  Receipt Date: 20061024
  Transmission Date: 20070319
  Serious: Yes (Other)
  Sender: FDA-Public Use
  Company Number: US-GLAXOSMITHKLINE-A0624744A

PATIENT
  Age: 47 Year
  Sex: Female

DRUGS (3)
  1. PAXIL [Suspect]
     Indication: INSOMNIA
     Dosage: 10MG PER DAY
     Route: 048
     Dates: start: 20010101, end: 20060601
  2. PAROXETINE HCL [Suspect]
     Indication: INSOMNIA
     Dosage: 10MG PER DAY
     Route: 048
     Dates: start: 20010101, end: 20060601
  3. NO CONCURRENT MEDICATION [Concomitant]

REACTIONS (5)
  - CONTUSION [None]
  - HAEMATOMA [None]
  - HAEMORRHAGE [None]
  - MUSCULOSKELETAL DISORDER [None]
  - PRURITUS [None]
